FAERS Safety Report 16789893 (Version 1)
Quarter: 2019Q3

REPORT INFORMATION
  Report Type: Report from Study
  Country: US (occurrence: US)
  Receive Date: 20190910
  Receipt Date: 20190910
  Transmission Date: 20191005
  Serious: Yes (Other)
  Sender: FDA-Public Use
  Company Number: US-MYLANLABS-2019M1083561

PATIENT

DRUGS (3)
  1. POLYVINYL ALCOHOL [Concomitant]
     Active Substance: POLYVINYL ALCOHOL
     Dosage: DEB-TACE USING UP TO TWO 2ML VIALS OF SPHERICAL POLYVINYL ALCOHOL MICROSP..
     Route: 065
  2. DOXORUBICIN [Suspect]
     Active Substance: DOXORUBICIN
     Indication: HEPATOCELLULAR CARCINOMA
     Dosage: DEB-TACE USING UP TO TWO 2ML VIALS OF SPHERICAL POLYVINYL ALCOHOL MICROSPHERES..
     Route: 065
  3. OMNIPAQUE [Concomitant]
     Active Substance: IOHEXOL
     Dosage: PRIOR TO ADMINISTRATION, EACH 2ML VIAL OF DRUG-ELUTING BEADS WAS RE..
     Route: 065

REACTIONS (2)
  - Ascites [Recovered/Resolved]
  - Condition aggravated [Recovered/Resolved]
